FAERS Safety Report 14909075 (Version 4)
Quarter: 2018Q2

REPORT INFORMATION
  Report Type: Report from Study
  Country: AR (occurrence: AR)
  Receive Date: 20180517
  Receipt Date: 20180605
  Transmission Date: 20180711
  Serious: Yes (Hospitalization, Other)
  Sender: FDA-Public Use
  Company Number: PHHY2018AR006016

PATIENT
  Sex: Female

DRUGS (4)
  1. SINLIP [Concomitant]
     Indication: PRODUCT USED FOR UNKNOWN INDICATION
     Dosage: UNK
     Route: 065
  2. METFORMIN [Concomitant]
     Active Substance: METFORMIN HYDROCHLORIDE
     Indication: DIABETES MELLITUS
     Dosage: 1 G, QD
     Route: 065
  3. ENTRESTO [Suspect]
     Active Substance: SACUBITRIL\VALSARTAN
     Dosage: 100 MG (SACUBITRIL 49 MG/ VALSARTAN 51 MG), BID
     Route: 065
     Dates: start: 20161212
  4. ENTRESTO [Suspect]
     Active Substance: SACUBITRIL\VALSARTAN
     Indication: CARDIAC FAILURE
     Dosage: 200 MG (SACUBITRIL 97 MG/ VALSARTAN 103 MG), BID
     Route: 065
     Dates: start: 201612

REACTIONS (15)
  - Malaise [Recovering/Resolving]
  - Diplegia [Recovering/Resolving]
  - Eye ulcer [Recovering/Resolving]
  - Bone marrow disorder [Unknown]
  - Hypoaesthesia [Recovering/Resolving]
  - Cataract [Recovering/Resolving]
  - Retinal vascular thrombosis [Unknown]
  - Visual impairment [Recovering/Resolving]
  - Gait inability [Not Recovered/Not Resolved]
  - Pollakiuria [Recovering/Resolving]
  - Chest pain [Recovering/Resolving]
  - Paralysis [Not Recovered/Not Resolved]
  - Ejection fraction decreased [Recovering/Resolving]
  - Diabetes mellitus [Recovering/Resolving]
  - Spinal pain [Not Recovered/Not Resolved]

NARRATIVE: CASE EVENT DATE: 2017
